FAERS Safety Report 11808132 (Version 1)
Quarter: 2015Q4

REPORT INFORMATION
  Report Type: Spontaneous
  Country: TR (occurrence: TR)
  Receive Date: 20151207
  Receipt Date: 20151207
  Transmission Date: 20160305
  Serious: Yes (Other)
  Sender: FDA-Public Use
  Company Number: PHHY2015TR159126

PATIENT
  Age: 17 Year
  Sex: Male

DRUGS (2)
  1. CARBAMAZEPINE. [Suspect]
     Active Substance: CARBAMAZEPINE
     Indication: SUBACUTE SCLEROSING PANENCEPHALITIS
     Route: 065
  2. VALPROIC ACID. [Suspect]
     Active Substance: VALPROIC ACID
     Indication: SUBACUTE SCLEROSING PANENCEPHALITIS
     Route: 065

REACTIONS (4)
  - Condition aggravated [Unknown]
  - Subacute sclerosing panencephalitis [Unknown]
  - Product use issue [Unknown]
  - Drug ineffective [Unknown]
